FAERS Safety Report 10579267 (Version 1)
Quarter: 2014Q4

REPORT INFORMATION
  Report Type: Report from Study
  Country: BR (occurrence: BR)
  Receive Date: 20141112
  Receipt Date: 20141112
  Transmission Date: 20150529
  Serious: Yes (Hospitalization, Other)
  Sender: FDA-Public Use
  Company Number: BR-TEVA-520473ISR

PATIENT
  Sex: Female

DRUGS (5)
  1. LEXOTAM [Concomitant]
     Route: 048
  2. COPAXONE [Suspect]
     Active Substance: GLATIRAMER ACETATE
     Indication: MULTIPLE SCLEROSIS
     Dosage: 20 MILLIGRAM DAILY;
     Route: 058
     Dates: start: 20080710, end: 201306
  3. MYTEDOM [Concomitant]
     Indication: PAIN
     Route: 048
  4. BACLOFEN. [Concomitant]
     Active Substance: BACLOFEN
     Route: 048
  5. CITALOPRAM [Concomitant]
     Active Substance: CITALOPRAM HYDROBROMIDE
     Indication: DEPRESSION
     Route: 048

REACTIONS (2)
  - Syncope [Recovered/Resolved]
  - Laryngeal obstruction [Recovered/Resolved]
